FAERS Safety Report 6127121-X (Version None)
Quarter: 2009Q1

REPORT INFORMATION
  Report Type: 
  Country: None (occurrence: None)
  Receive Date: 20090320
  Receipt Date: 20090310
  Transmission Date: 20090719
  Serious: Yes (Hospitalization)
  Sender: FDA-Public Use
  Company Number: BR-PFIZER INC-2009182674

PATIENT

DRUGS (1)
  1. CELEBRA [Suspect]
     Indication: ARTHRITIS
     Dosage: SEE BLOCK 5
     Route: 048
     Dates: start: 20060301

REACTIONS (1)
  - CARDIAC DISORDER [None]
